FAERS Safety Report 8245453-6 (Version None)
Quarter: 2012Q1

REPORT INFORMATION
  Report Type: 
  Country: None (occurrence: None)
  Receive Date: 20120329
  Receipt Date: 20120327
  Transmission Date: 20120608
  Serious: Yes (Hospitalization, Disabling, Other)
  Sender: FDA-Public Use
  Company Number: US-MERCK-1201USA02535

PATIENT
  Age: 58 Year
  Sex: Female

DRUGS (7)
  1. FOSAMAX [Suspect]
     Indication: ARTHRITIS
     Route: 048
     Dates: end: 20110101
  2. FOSAMAX [Suspect]
     Route: 048
     Dates: start: 20110305
  3. FOSAMAX [Suspect]
     Route: 048
     Dates: start: 20110305
  4. FOSAMAX [Suspect]
     Indication: OSTEOPOROSIS
     Route: 048
     Dates: end: 20110101
  5. FOSAMAX [Suspect]
     Route: 048
     Dates: start: 20060901
  6. FOSAMAX [Suspect]
     Route: 048
     Dates: start: 20060901
  7. MOBIC [Concomitant]
     Route: 048

REACTIONS (12)
  - VITAMIN D DEFICIENCY [None]
  - BONE DENSITY DECREASED [None]
  - UTERINE DISORDER [None]
  - OFF LABEL USE [None]
  - FRACTURE [None]
  - FEMUR FRACTURE [None]
  - GASTROOESOPHAGEAL REFLUX DISEASE [None]
  - FALL [None]
  - BONE DISORDER [None]
  - FOOT FRACTURE [None]
  - TOOTH DISORDER [None]
  - BLOOD CHOLESTEROL INCREASED [None]
